FAERS Safety Report 5217847-4 (Version None)
Quarter: 2007Q1

REPORT INFORMATION
  Report Type: 
  Country: None (occurrence: None)
  Receive Date: 20070124
  Receipt Date: 20070122
  Transmission Date: 20070707
  Serious: Yes (Hospitalization)
  Sender: FDA-Public Use
  Company Number: JP-SHR-JP-2006-036043

PATIENT
  Age: 34 Year
  Sex: Female

DRUGS (8)
  1. BETASERON [Suspect]
     Indication: RELAPSING-REMITTING MULTIPLE SCLEROSIS
     Dosage: 8 MIU, EVERY 2D
     Route: 058
     Dates: start: 20020727, end: 20030225
  2. BETASERON [Suspect]
     Dosage: 8 MIU, EVERY 2D
     Route: 058
     Dates: start: 20030401, end: 20030718
  3. BETASERON [Suspect]
     Dosage: 8 MIU, EVERY 2D
     Route: 058
     Dates: start: 20040724, end: 20050401
  4. PREDONINE [Concomitant]
     Indication: RELAPSING-REMITTING MULTIPLE SCLEROSIS
     Dosage: 40-10 MG
     Route: 048
     Dates: start: 20020310, end: 20020518
  5. PREDONINE [Concomitant]
     Dosage: 30-5 MG
     Route: 048
     Dates: start: 20020705, end: 20021227
  6. PREDONINE [Concomitant]
     Dosage: 12.5-7.5 MG
     Route: 048
     Dates: start: 20030228, end: 20040109
  7. PREDONINE [Concomitant]
     Dosage: 30-5 MG
     Route: 048
     Dates: start: 20040218, end: 20040625
  8. PREDONINE [Concomitant]
     Dosage: 30-7.5 MG
     Route: 048
     Dates: start: 20040820, end: 20050401

REACTIONS (4)
  - DRUG EXPOSURE DURING PREGNANCY [None]
  - PLACENTA PRAEVIA [None]
  - PREMATURE BABY [None]
  - THREATENED LABOUR [None]
